FAERS Safety Report 13620665 (Version 1)
Quarter: 2017Q2

REPORT INFORMATION
  Report Type: Spontaneous
  Country: US (occurrence: US)
  Receive Date: 20170607
  Receipt Date: 20170607
  Transmission Date: 20170830
  Serious: Yes (Other)
  Sender: FDA-Public Use
  Company Number: US-TORRENT-00002794

PATIENT
  Age: 79 Year
  Sex: Male

DRUGS (5)
  1. SPIRONOLACTONE. [Suspect]
     Active Substance: SPIRONOLACTONE
  2. LOSARTAN. [Suspect]
     Active Substance: LOSARTAN
  3. DOXAZOSIN [Suspect]
     Active Substance: DOXAZOSIN\DOXAZOSIN MESYLATE
  4. CARVEDILOL. [Suspect]
     Active Substance: CARVEDILOL
  5. NIFEDIPINE. [Suspect]
     Active Substance: NIFEDIPINE

REACTIONS (1)
  - Fatigue [Unknown]
